FAERS Safety Report 4495738-4 (Version None)
Quarter: 2004Q4

REPORT INFORMATION
  Report Type: 
  Country: None (occurrence: None)
  Receive Date: 20041104
  Receipt Date: 20041019
  Transmission Date: 20050328
  Serious: Yes (Hospitalization)
  Sender: FDA-Public Use
  Company Number: 206788

PATIENT
  Age: 53 Year
  Sex: Female
  Weight: 72.5755 kg

DRUGS (3)
  1. AVONEX [Suspect]
     Indication: MULTIPLE SCLEROSIS
     Dosage: 30 MCG QW IM
     Route: 030
     Dates: start: 20010101
  2. AVONEX [Suspect]
     Indication: MULTIPLE SCLEROSIS
     Dosage: 30 MCG QW IM
     Route: 030
  3. NORCO [Concomitant]

REACTIONS (7)
  - ADJUSTMENT DISORDER [None]
  - BACK PAIN [None]
  - BALANCE DISORDER [None]
  - BLOOD TEST ABNORMAL [None]
  - CONSTIPATION [None]
  - FALL [None]
  - RENAL CYST [None]
